FAERS Safety Report 22193293 (Version 2)
Quarter: 2023Q2

REPORT INFORMATION
  Report Type: Report from Study
  Country: CA (occurrence: CA)
  Receive Date: 20230410
  Receipt Date: 20230505
  Transmission Date: 20230722
  Serious: Yes (Hospitalization)
  Sender: FDA-Public Use
  Company Number: CA-AstraZeneca-2023A077970

PATIENT
  Sex: Male

DRUGS (3)
  1. ENHERTU [Suspect]
     Active Substance: FAM-TRASTUZUMAB DERUXTECAN-NXKI
     Indication: Chronic lymphocytic leukaemia
     Dosage: 100 MG, ONCE EVERY 12HR
     Route: 042
     Dates: start: 20210408
  2. CALQUENCE [Interacting]
     Active Substance: ACALABRUTINIB
     Indication: Chronic lymphocytic leukaemia
     Dosage: 100 MG, ONCE EVERY 12HR
     Route: 048
     Dates: start: 20210408, end: 20230426
  3. PANTOPRAZOLE SODIUM [Interacting]
     Active Substance: PANTOPRAZOLE SODIUM
     Indication: Product used for unknown indication
     Dosage: 40 MG, ONCE EVERY 12HR
     Route: 065

REACTIONS (2)
  - Ulcer haemorrhage [Recovering/Resolving]
  - Drug interaction [Unknown]
